FAERS Safety Report 8824628 (Version 1)
Quarter: 2012Q4

REPORT INFORMATION
  Report Type: 
  Country: FR (occurrence: FR)
  Receive Date: 20121004
  Receipt Date: 20121004
  Transmission Date: 20130627
  Serious: Yes (Hospitalization)
  Sender: FDA-Public Use
  Company Number: PHHY2012FR085021

PATIENT
  Age: 74 Year
  Sex: Female
  Weight: 79 kg

DRUGS (12)
  1. VOLTARENE [Suspect]
     Indication: BACK PAIN
     Dates: end: 20120811
  2. VOLTAREN [Suspect]
     Indication: BACK PAIN
     Dosage: 75 mg, for 3 days
     Dates: start: 20120813, end: 20120816
  3. NITROFURANTOIN [Suspect]
     Indication: CYSTITIS
     Dosage: 1 DF daily
     Route: 048
     Dates: start: 2011, end: 20120817
  4. THIOCOLCHICOSIDE [Suspect]
  5. ACETAMINOPHEN [Suspect]
  6. SOLUPRED [Suspect]
     Dosage: 60 mg, for 4 days
  7. ACETAMINOPHEN AND CODEINE [Suspect]
  8. COTAREG [Concomitant]
     Dosage: 1 DF in morning
  9. SERETIDE [Concomitant]
     Dosage: 250 ug 1 inhalation in morning and evening
  10. BECLOMETASONE [Concomitant]
     Dosage: 1 pulverization in each nostril in the morning
     Route: 045
  11. KESTINE [Concomitant]
     Dosage: 10 mg, 1 DF in evening
  12. DEROXAT [Concomitant]
     Dosage: 20 mg at 1 DF in evening

REACTIONS (5)
  - Drug-induced liver injury [Recovered/Resolved]
  - Biliary dilatation [Unknown]
  - Hyperaesthesia [Unknown]
  - Back pain [Unknown]
  - Drug ineffective [Unknown]
